FAERS Safety Report 14807407 (Version 4)
Quarter: 2018Q3

REPORT INFORMATION
  Report Type: Spontaneous
  Country: US (occurrence: US)
  Receive Date: 20180425
  Receipt Date: 20180808
  Transmission Date: 20181010
  Serious: No
  Sender: FDA-Public Use
  Company Number: US-ACTELION-A-US2018-171001

PATIENT
  Age: 79 Year
  Sex: Female

DRUGS (2)
  1. OPSUMIT [Suspect]
     Active Substance: MACITENTAN
     Indication: PULMONARY ARTERIAL HYPERTENSION
     Dosage: 10 MG, QD
     Route: 048
     Dates: start: 20171003
  2. ADEMPAS [Concomitant]
     Active Substance: RIOCIGUAT
     Dosage: 2.5 MG, TID
     Dates: start: 20180323

REACTIONS (9)
  - Diarrhoea [Unknown]
  - Ascites [Unknown]
  - Upper-airway cough syndrome [Unknown]
  - Dyspepsia [Unknown]
  - Dizziness [Unknown]
  - Headache [Unknown]
  - Peripheral swelling [Unknown]
  - Nausea [Unknown]
  - Cough [Unknown]
